FAERS Safety Report 22629739 (Version 1)
Quarter: 2023Q2

REPORT INFORMATION
  Report Type: Spontaneous
  Country: CH (occurrence: CH)
  Receive Date: 20230622
  Receipt Date: 20230622
  Transmission Date: 20230722
  Serious: Yes (Other)
  Sender: FDA-Public Use
  Company Number: None

PATIENT
  Age: 60 Year
  Sex: Male
  Weight: 72 kg

DRUGS (8)
  1. ERLEADA [Suspect]
     Active Substance: APALUTAMIDE
     Indication: Prostate cancer
     Dosage: 0-0-4-0? (FILMTABL 60 MG) BLIST
     Route: 048
     Dates: start: 20230511, end: 20230525
  2. HYDROCHLOROTHIAZIDE\LISINOPRIL [Suspect]
     Active Substance: HYDROCHLOROTHIAZIDE\LISINOPRIL
     Indication: Hypertension
     Dosage: 1-0-0?20/12.5 MG
     Route: 048
     Dates: start: 20230424, end: 20230525
  3. LISINOPRIL [Suspect]
     Active Substance: LISINOPRIL
     Indication: Hypertension
     Dosage: 1-0-0?20 MG
     Route: 048
     Dates: start: 2023, end: 20230424
  4. MOXONIDINE [Concomitant]
     Active Substance: MOXONIDINE
     Indication: Hypertension
     Dosage: 1-0-1-0
     Route: 048
     Dates: start: 2023
  5. CELECOXIB [Concomitant]
     Active Substance: CELECOXIB
     Indication: Pain
     Dosage: 1-0-0-0
     Route: 048
  6. CALCIUM\CHOLECALCIFEROL [Concomitant]
     Active Substance: CALCIUM\CHOLECALCIFEROL
     Indication: Vitamin D deficiency
     Dosage: 1-0-0-0
     Route: 048
     Dates: end: 20230425
  7. SILODOSIN [Concomitant]
     Active Substance: SILODOSIN
     Indication: Benign prostatic hyperplasia
     Dosage: 1-0-0-0
     Route: 048
     Dates: start: 2022
  8. MORPHINE [Concomitant]
     Active Substance: MORPHINE
     Dosage: MORPHIN-SCHMERZPUMPE
     Route: 050
     Dates: start: 2022

REACTIONS (2)
  - Angioedema [Recovering/Resolving]
  - Electrolyte imbalance [Recovering/Resolving]

NARRATIVE: CASE EVENT DATE: 20230525
